FAERS Safety Report 7998573-5 (Version None)
Quarter: 2011Q4

REPORT INFORMATION
  Report Type: 
  Country: None (occurrence: None)
  Receive Date: 20111221
  Receipt Date: 20111214
  Transmission Date: 20120403
  Serious: Yes (Other)
  Sender: FDA-Public Use
  Company Number: US-ACTELION-A-US2011-58160

PATIENT

DRUGS (2)
  1. TRACLEER [Suspect]
     Indication: PULMONARY ARTERIAL HYPERTENSION
     Dosage: UNK
     Route: 048
     Dates: start: 20111028
  2. CALCIUM CHANNEL BLOCKERS [Concomitant]

REACTIONS (5)
  - DYSPNOEA [None]
  - PALPITATIONS [None]
  - DIZZINESS [None]
  - NERVOUSNESS [None]
  - CARDIAC DISORDER [None]
